FAERS Safety Report 8089661-6 (Version None)
Quarter: 2012Q1

REPORT INFORMATION
  Report Type: 
  Country: None (occurrence: None)
  Receive Date: 20120128
  Receipt Date: 20110616
  Transmission Date: 20120608
  Serious: No
  Sender: FDA-Public Use
  Company Number: US-ABBOTT-11P-163-0730083-00

PATIENT
  Sex: Female
  Weight: 88.53 kg

DRUGS (9)
  1. INSULIN [Concomitant]
     Indication: PRODUCT USED FOR UNKNOWN INDICATION
     Dosage: SLIDING SCALE DAILY
  2. NORVASC [Concomitant]
     Indication: HYPERTENSION
  3. NOVOLOG [Concomitant]
     Indication: DIABETES MELLITUS
     Dosage: INSULIN
  4. HYDROCHLOROTHIAZIDE [Concomitant]
     Indication: HYPERTENSION
  5. HUMIRA [Suspect]
     Indication: PSORIASIS
     Dates: start: 20100101, end: 20101101
  6. HUMIRA [Suspect]
     Route: 058
     Dates: start: 20110201
  7. ZOCOR [Concomitant]
     Indication: BLOOD CHOLESTEROL
  8. GLIPIZIDE [Concomitant]
     Indication: DIABETES MELLITUS
  9. LANTUS [Concomitant]
     Indication: DIABETES MELLITUS

REACTIONS (8)
  - INFLUENZA [None]
  - TREMOR [None]
  - DRUG INEFFECTIVE [None]
  - ECCHYMOSIS [None]
  - PSORIASIS [None]
  - WRONG TECHNIQUE IN DRUG USAGE PROCESS [None]
  - LOCAL SWELLING [None]
  - MUSCULAR WEAKNESS [None]
